FAERS Safety Report 12190238 (Version 1)
Quarter: 2016Q1

REPORT INFORMATION
  Report Type: Spontaneous
  Country: US (occurrence: None)
  Receive Date: 20160317
  Receipt Date: 20160317
  Transmission Date: 20160526
  Serious: Yes (Disabling)
  Sender: FDA-Public Use
  Company Number: None

PATIENT
  Age: 70 Year
  Sex: Male
  Weight: 71.67 kg

DRUGS (3)
  1. ATORVASTATIN [Concomitant]
     Active Substance: ATORVASTATIN
  2. AFRIN [Suspect]
     Active Substance: OXYMETAZOLINE
     Indication: NASOPHARYNGITIS
     Dates: start: 20150510, end: 20150510
  3. CENTRUM SILVER [Concomitant]
     Active Substance: MINERALS\VITAMINS

REACTIONS (3)
  - Anosmia [None]
  - Application site pain [None]
  - Ageusia [None]

NARRATIVE: CASE EVENT DATE: 20150510
